FAERS Safety Report 15898698 (Version 1)
Quarter: 2019Q1

REPORT INFORMATION
  Report Type: Report from Study
  Country: JP (occurrence: JP)
  Receive Date: 20190201
  Receipt Date: 20190201
  Transmission Date: 20190417
  Serious: Yes (Other)
  Sender: FDA-Public Use
  Company Number: JP-ROCHE-2254442

PATIENT

DRUGS (1)
  1. RITUXIMAB. [Suspect]
     Active Substance: RITUXIMAB
     Indication: ANTI-NEUTROPHIL CYTOPLASMIC ANTIBODY POSITIVE VASCULITIS
     Route: 042

REACTIONS (7)
  - Hypogammaglobulinaemia [Unknown]
  - Infusion related reaction [Unknown]
  - Infection [Unknown]
  - Leukopenia [Unknown]
  - Cerebrovascular accident [Unknown]
  - Thrombocytopenia [Unknown]
  - Anaemia [Unknown]
